FAERS Safety Report 5804493-4 (Version None)
Quarter: 2008Q3

REPORT INFORMATION
  Report Type: 
  Country: None (occurrence: None)
  Receive Date: 20080709
  Receipt Date: 20080707
  Transmission Date: 20090109
  Serious: Yes (Hospitalization, Disabling)
  Sender: FDA-Public Use
  Company Number: B0528022A

PATIENT
  Age: 58 Year
  Sex: Female

DRUGS (3)
  1. SERETIDE [Suspect]
     Indication: ASTHMA
     Dosage: 500MCG TWICE PER DAY
     Route: 055
     Dates: start: 20071011, end: 20080626
  2. THEO-DUR [Concomitant]
     Route: 048
  3. ONON [Concomitant]
     Route: 048

REACTIONS (1)
  - ALLERGIC GRANULOMATOUS ANGIITIS [None]
